FAERS Safety Report 15192230 (Version 1)
Quarter: 2018Q3

REPORT INFORMATION
  Report Type: Report from Study
  Country: US (occurrence: US)
  Receive Date: 20180724
  Receipt Date: 20180724
  Transmission Date: 20181010
  Serious: Yes (Other)
  Sender: FDA-Public Use
  Company Number: US-SHIRE-US201827546

PATIENT
  Age: 57 Year
  Sex: Female
  Weight: 61.22 kg

DRUGS (5)
  1. METFORMIN [Concomitant]
     Active Substance: METFORMIN HYDROCHLORIDE
     Indication: BLOOD INSULIN ABNORMAL
  2. XIIDRA [Suspect]
     Active Substance: LIFITEGRAST
     Indication: DRY EYE
     Dosage: 1 GTT, 2X/DAY:BID
     Route: 047
     Dates: start: 20180619, end: 20180627
  3. ASPIRIN. [Concomitant]
     Active Substance: ASPIRIN
     Indication: PROPHYLAXIS
  4. XIIDRA [Suspect]
     Active Substance: LIFITEGRAST
     Dosage: 1 GTT, 2X/DAY:BID
     Route: 047
     Dates: start: 20180704, end: 20180704
  5. LEVOTHYROXINE. [Concomitant]
     Active Substance: LEVOTHYROXINE
     Indication: THYROID DISORDER

REACTIONS (6)
  - Eyelid oedema [Recovered/Resolved]
  - Nausea [Recovered/Resolved]
  - Instillation site pain [Recovered/Resolved]
  - Headache [Recovered/Resolved]
  - Retching [Recovered/Resolved]
  - Nervousness [Recovered/Resolved]

NARRATIVE: CASE EVENT DATE: 20180619
